FAERS Safety Report 8803025 (Version 1)
Quarter: 2012Q4

REPORT INFORMATION
  Report Type: 
  Country: US (occurrence: US)
  Receive Date: 20120924
  Receipt Date: 20120924
  Transmission Date: 20130627
  Serious: No
  Sender: FDA-Public Use
  Company Number: US-TEVA-360406USA

PATIENT
  Age: 22 Year
  Sex: Female
  Weight: 67.19 kg

DRUGS (1)
  1. PLAN B ONE-STEP [Suspect]
     Indication: MENSTRUATION IRREGULAR
     Dosage: 1.5 Milligram Daily;
     Route: 048
     Dates: start: 20120915, end: 20120915

REACTIONS (1)
  - Menstruation irregular [Not Recovered/Not Resolved]
